FAERS Safety Report 12373592 (Version 1)
Quarter: 2016Q2

REPORT INFORMATION
  Report Type: Spontaneous
  Country: US (occurrence: US)
  Receive Date: 20160516
  Receipt Date: 20160516
  Transmission Date: 20160815
  Serious: No
  Sender: FDA-Public Use
  Company Number: US-AMGEN-USASL2016059351

PATIENT
  Age: 59 Year
  Sex: Female

DRUGS (1)
  1. ENBREL [Suspect]
     Active Substance: ETANERCEPT
     Indication: RHEUMATOID ARTHRITIS
     Dosage: UNK UNK, QWK
     Route: 065

REACTIONS (7)
  - Asthenia [Unknown]
  - Unevaluable event [Unknown]
  - Tendonitis [Unknown]
  - Injection site bruising [Unknown]
  - Fear of injection [Unknown]
  - Carpal tunnel syndrome [Unknown]
  - Rehabilitation therapy [Unknown]
